FAERS Safety Report 6194893-8 (Version None)
Quarter: 2009Q2

REPORT INFORMATION
  Report Type: 
  Country: None (occurrence: None)
  Receive Date: 20090519
  Receipt Date: 20090105
  Transmission Date: 20091009
  Serious: No
  Sender: FDA-Public Use
  Company Number: US-TYCO HEALTHCARE/MALLINCKRODT-T200900005

PATIENT
  Age: 41 Year
  Sex: Female
  Weight: 70.295 kg

DRUGS (4)
  1. METHADONE [Suspect]
     Indication: PAIN
     Dosage: 5 MG, TID
     Route: 048
     Dates: start: 20080101, end: 20081231
  2. HYDROCODONE BITARTRATE [Concomitant]
     Indication: BREAKTHROUGH PAIN
     Dosage: 7.5 MG, PRN
     Route: 048
  3. ALPRAZOLAM [Concomitant]
     Indication: ANXIETY
     Dosage: UNK
     Route: 048
  4. PROPRANOLOL HYDROCHLORIDE [Concomitant]
     Indication: BLOOD PRESSURE
     Dosage: 10 MG, BID
     Route: 048

REACTIONS (4)
  - BREAKTHROUGH PAIN [None]
  - FEELING JITTERY [None]
  - WEIGHT INCREASED [None]
  - WITHDRAWAL SYNDROME [None]
